FAERS Safety Report 4890752-9 (Version None)
Quarter: 2006Q1

REPORT INFORMATION
  Report Type: 
  Country: None (occurrence: None)
  Receive Date: 20060123
  Receipt Date: 20060110
  Transmission Date: 20060701
  Serious: Yes (Hospitalization)
  Sender: FDA-Public Use
  Company Number: US014213

PATIENT
  Age: 27 Year
  Sex: Male

DRUGS (11)
  1. GABITRIL [Suspect]
     Indication: ANXIETY
     Dosage: 4 MG QHS ORAL
     Route: 048
     Dates: start: 20040528
  2. GABITRIL [Suspect]
     Indication: INSOMNIA
     Dosage: 4 MG QHS ORAL
     Route: 048
     Dates: start: 20040528
  3. GABITRIL [Suspect]
     Indication: ANXIETY
     Dosage: 24 MG QHS ORAL
     Route: 048
     Dates: end: 20040929
  4. GABITRIL [Suspect]
     Indication: INSOMNIA
     Dosage: 24 MG QHS ORAL
     Route: 048
     Dates: end: 20040929
  5. GABITRIL [Suspect]
     Indication: ANXIETY
     Dosage: 40 MG ONCE ORAL
     Route: 048
     Dates: start: 20040930, end: 20040930
  6. GABITRIL [Suspect]
     Indication: INSOMNIA
     Dosage: 40 MG ONCE ORAL
     Route: 048
     Dates: start: 20040930, end: 20040930
  7. GABITRIL [Suspect]
     Indication: ANXIETY
     Dosage: 24 MG QHS ORAL
     Route: 048
     Dates: start: 20041001
  8. GABITRIL [Suspect]
     Indication: INSOMNIA
     Dosage: 24 MG QHS ORAL
     Route: 048
     Dates: start: 20041001
  9. ZYPREXA [Concomitant]
  10. ATIVAN [Concomitant]
  11. VITAMIN SUPPLEMENTS [Concomitant]

REACTIONS (8)
  - ABNORMAL BEHAVIOUR [None]
  - CONVULSION [None]
  - DEPRESSION [None]
  - INCORRECT DOSE ADMINISTERED [None]
  - MEMORY IMPAIRMENT [None]
  - SCRATCH [None]
  - SHOULDER PAIN [None]
  - WOUND [None]
